FAERS Safety Report 5262787-8 (Version None)
Quarter: 2007Q1

REPORT INFORMATION
  Report Type: 
  Country: None (occurrence: None)
  Receive Date: 20070312
  Receipt Date: 20070301
  Transmission Date: 20070707
  Serious: Yes (Life-Threatening, Hospitalization, Other)
  Sender: FDA-Public Use
  Company Number: AT-GLAXOSMITHKLINE-B0456494A

PATIENT
  Age: 74 Year
  Sex: Female
  Weight: 73 kg

DRUGS (6)
  1. ARIXTRA [Suspect]
     Indication: THROMBOSIS PROPHYLAXIS
     Dosage: 1AMP PER DAY
     Route: 058
     Dates: start: 20061108, end: 20061110
  2. BEZALIP [Concomitant]
     Dosage: 400MG AT NIGHT
     Route: 048
  3. GINKO BILOBA [Concomitant]
     Dosage: 40MG SEE DOSAGE TEXT
     Route: 048
  4. CALCIUM [Concomitant]
     Dosage: 1000MG SEE DOSAGE TEXT
     Route: 048
  5. FOSAMAX [Concomitant]
  6. BLOPRESS [Concomitant]
     Dosage: 16MG PER DAY

REACTIONS (1)
  - PULMONARY EMBOLISM [None]
